FAERS Safety Report 8303200-3 (Version None)
Quarter: 2012Q2

REPORT INFORMATION
  Report Type: 
  Country: None (occurrence: None)
  Receive Date: 20120423
  Receipt Date: 20120410
  Transmission Date: 20120825
  Serious: No
  Sender: FDA-Public Use
  Company Number: US-BIOGENIDEC-2012BI012781

PATIENT
  Age: 56 Year
  Sex: Female

DRUGS (1)
  1. TYSABRI [Suspect]
     Indication: MULTIPLE SCLEROSIS
     Route: 042
     Dates: start: 20110722, end: 20120330

REACTIONS (8)
  - INFUSION SITE EXTRAVASATION [None]
  - DIARRHOEA [None]
  - HYPOAESTHESIA [None]
  - OEDEMA PERIPHERAL [None]
  - GAIT DISTURBANCE [None]
  - ERYTHEMA [None]
  - MUSCULOSKELETAL DISORDER [None]
  - POOR VENOUS ACCESS [None]
